FAERS Safety Report 9618925 (Version 1)
Quarter: 2013Q4

REPORT INFORMATION
  Report Type: Spontaneous
  Country: US (occurrence: US)
  Receive Date: 20131014
  Receipt Date: 20131014
  Transmission Date: 20140711
  Serious: No
  Sender: FDA-Public Use
  Company Number: US-BAYER-2013-119745

PATIENT
  Sex: 0

DRUGS (1)
  1. CIPRO 5 % ORAL SUSPENSION [Suspect]
     Route: 048

REACTIONS (2)
  - Product contamination physical [None]
  - Wrong technique in drug usage process [None]
